FAERS Safety Report 5174422-8 (Version None)
Quarter: 2006Q4

REPORT INFORMATION
  Report Type: 
  Country: None (occurrence: None)
  Receive Date: 20061206
  Receipt Date: 20061120
  Transmission Date: 20070319
  Serious: Yes (Other)
  Sender: FDA-Public Use
  Company Number: L06-ITA-05013-01

PATIENT
  Age: 68 Year
  Sex: Female

DRUGS (4)
  1. CITALOPRAM HYDROBROMIDE [Suspect]
     Indication: ANXIETY
     Dosage: 20 MG
     Dates: start: 20030101, end: 20031101
  2. CITALOPRAM HYDROBROMIDE [Suspect]
     Indication: DEPRESSED MOOD
     Dosage: 20 MG
     Dates: start: 20030101, end: 20031101
  3. BROMAZEPAM [Suspect]
     Indication: ANXIETY
     Dosage: 3 MG
     Dates: end: 20031101
  4. BROMAZEPAM [Suspect]
     Indication: DEPRESSED MOOD
     Dosage: 3 MG
     Dates: end: 20031101

REACTIONS (5)
  - BLOOD CREATININE INCREASED [None]
  - DYSARTHRIA [None]
  - DYSPHAGIA [None]
  - OLIGURIA [None]
  - PARKINSONISM [None]
